FAERS Safety Report 13133178 (Version 4)
Quarter: 2017Q1

REPORT INFORMATION
  Report Type: Spontaneous
  Country: US (occurrence: US)
  Receive Date: 20170120
  Receipt Date: 20170227
  Transmission Date: 20170428
  Serious: Yes (Other)
  Sender: FDA-Public Use
  Company Number: US-DRREDDYS-USA/USA/17/0086364

PATIENT
  Age: 26 Year
  Sex: Female

DRUGS (1)
  1. ZENATANE [Suspect]
     Active Substance: ISOTRETINOIN
     Indication: PRODUCT USED FOR UNKNOWN INDICATION
     Route: 065
     Dates: start: 20160815, end: 20170109

REACTIONS (4)
  - Respiratory disorder [Unknown]
  - Exposure during pregnancy [Unknown]
  - Unevaluable event [Recovered/Resolved]
  - Selective abortion [Unknown]

NARRATIVE: CASE EVENT DATE: 201612
